FAERS Safety Report 6279721-4 (Version None)
Quarter: 2009Q3

REPORT INFORMATION
  Report Type: 
  Country: None (occurrence: None)
  Receive Date: 20090721
  Receipt Date: 20090713
  Transmission Date: 20100115
  Serious: Yes (Death)
  Sender: FDA-Public Use
  Company Number: 2008JP005433

PATIENT
  Age: 55 Year
  Sex: Female

DRUGS (4)
  1. PROGRAF [Suspect]
     Indication: RENAL TRANSPLANT
     Dosage: 6 MG, UID/QD, ORAL
     Route: 048
     Dates: start: 20070206, end: 20070511
  2. CELLCEPT [Concomitant]
  3. PREDNISOLONE [Concomitant]
  4. ORTHOCLONE OKT3 [Concomitant]

REACTIONS (5)
  - HAEMODIALYSIS [None]
  - INFECTION IN AN IMMUNOCOMPROMISED HOST [None]
  - KIDNEY TRANSPLANT REJECTION [None]
  - PNEUMOCYSTIS JIROVECI PNEUMONIA [None]
  - RESPIRATORY FAILURE [None]
